FAERS Safety Report 6511902-4 (Version None)
Quarter: 2009Q4

REPORT INFORMATION
  Report Type: 
  Country: None (occurrence: None)
  Receive Date: 20091222
  Receipt Date: 20090623
  Transmission Date: 20100525
  Serious: No
  Sender: FDA-Public Use
  Company Number: US-ASTRAZENECA-2009UW17344

PATIENT
  Age: 79 Year
  Sex: Female

DRUGS (7)
  1. CRESTOR [Suspect]
     Route: 048
     Dates: start: 20060101
  2. ASPIRIN [Concomitant]
  3. NEXIUM [Concomitant]
     Route: 048
  4. AVALIDE [Concomitant]
  5. NADOLOL [Concomitant]
  6. FELODIPINE [Concomitant]
  7. ALPRAZOLAM [Concomitant]

REACTIONS (3)
  - GAIT DISTURBANCE [None]
  - MUSCULAR WEAKNESS [None]
  - MYALGIA [None]
